FAERS Safety Report 11987862 (Version 1)
Quarter: 2016Q1

REPORT INFORMATION
  Report Type: Spontaneous
  Country: US (occurrence: None)
  Receive Date: 20160201
  Receipt Date: 20160201
  Transmission Date: 20160526
  Serious: No
  Sender: FDA-Public Use
  Company Number: None

PATIENT
  Age: 32 Year
  Sex: Female
  Weight: 74.84 kg

DRUGS (7)
  1. KLONOPIN [Concomitant]
     Active Substance: CLONAZEPAM
  2. GABAPENTIN. [Concomitant]
     Active Substance: GABAPENTIN
  3. CIPROFLOXACIN HCL 250 MG [Suspect]
     Active Substance: CIPROFLOXACIN
     Dosage: 14 PILLS, TWICE DAILY, TAKEN BY MOUTH
  4. NORCO [Concomitant]
     Active Substance: ACETAMINOPHEN\HYDROCODONE BITARTRATE
  5. FLUCONAZOLE 150 MG [Suspect]
     Active Substance: FLUCONAZOLE
     Dosage: 1 PILL, ONCE DAILY, TAKEN BY MOUTH
  6. NAPROSYN [Concomitant]
     Active Substance: NAPROXEN
  7. SOMA [Concomitant]
     Active Substance: CARISOPRODOL

REACTIONS (10)
  - Asthenia [None]
  - Erythema [None]
  - Epistaxis [None]
  - Rash [None]
  - Dyspnoea [None]
  - Skin disorder [None]
  - Anxiety [None]
  - Contusion [None]
  - Gait disturbance [None]
  - Pain in extremity [None]

NARRATIVE: CASE EVENT DATE: 20160130
